FAERS Safety Report 8241288-9 (Version None)
Quarter: 2012Q1

REPORT INFORMATION
  Report Type: 
  Country: None (occurrence: None)
  Receive Date: 20120328
  Receipt Date: 20120326
  Transmission Date: 20120608
  Serious: Yes (Other)
  Sender: FDA-Public Use
  Company Number: US-PFIZER INC-2012063693

PATIENT
  Sex: Male
  Weight: 100 kg

DRUGS (3)
  1. SUTENT [Suspect]
     Indication: CARCINOID TUMOUR OF THE SMALL BOWEL
     Dosage: 12.5 MG, 3X/DAY
     Route: 048
     Dates: start: 20120302
  2. SUTENT [Suspect]
     Indication: METASTASES TO LIVER
  3. LOMOTIL [Concomitant]
     Indication: DIARRHOEA
     Dosage: 7.5 MG, 1X/DAY

REACTIONS (2)
  - STOMATITIS [None]
  - OROPHARYNGEAL BLISTERING [None]
